FAERS Safety Report 9459169 (Version 2)
Quarter: 2013Q3

REPORT INFORMATION
  Report Type: Spontaneous
  Country: RU (occurrence: RU)
  Receive Date: 20130814
  Receipt Date: 20130821
  Transmission Date: 20140515
  Serious: No
  Sender: FDA-Public Use
  Company Number: RU-PFIZER INC-2013232228

PATIENT
  Age: 65 Year
  Sex: Female

DRUGS (15)
  1. LYRICA [Suspect]
     Indication: DIABETIC NEUROPATHY
     Dosage: 150 MG, 2X/DAY
     Route: 048
     Dates: start: 20130704, end: 20130710
  2. LANTUS [Concomitant]
     Indication: TYPE 2 DIABETES MELLITUS
     Dosage: UNK, BEFORE NIGHT
     Dates: start: 2011
  3. HUMULIN R [Concomitant]
     Indication: TYPE 2 DIABETES MELLITUS
     Dosage: UNK, 3X/DAY BEFORE MEAL
     Dates: start: 2011
  4. BERLITION [Concomitant]
     Dosage: 300 MG, UNK, DRIP INFUSION WITH PHYSIOLOGICAL SOLUTION, NO.5
     Route: 041
  5. DROTAVERINE [Concomitant]
     Dosage: 2.0 UNK, UNK, NO.7
     Route: 030
  6. IDRINOL [Concomitant]
     Dosage: 5 UNK, UNK
     Route: 042
  7. PIRACETAM [Concomitant]
     Dosage: 5.0 UNK, UNK, 20%, NO. 10
     Route: 042
  8. EGLONYL [Concomitant]
     Dosage: 1.0 UNK, UNK, NO.10
     Route: 030
  9. ARIFON [Concomitant]
     Dosage: 1.5 MG AT 1 TABLET IN THE MORNING
  10. CURANTYL [Concomitant]
     Dosage: 25 MG, AT 1 TAB 3X/DAY
  11. VINPOCETINE [Concomitant]
     Dosage: 0.5 AT 1 TAB 3X/DAY
  12. LIPOIC ACID [Concomitant]
     Dosage: 0.025 AT 1 TAB 3X/DAY
  13. SONAPAX [Concomitant]
     Dosage: 0.025 MG, AT 1 TAB BEFORE SLEEP
  14. AMLODIPINE [Concomitant]
     Dosage: 10 MG, AT 1/2 TAB 2X/DAY
  15. CARBAMAZEPINE [Concomitant]
     Dosage: 200 MG AT 1/2 TAB 2X/DAY

REACTIONS (3)
  - Drug intolerance [Recovered/Resolved]
  - Urinary incontinence [Recovered/Resolved]
  - Dizziness [Recovered/Resolved]
